FAERS Safety Report 6989176-X (Version None)
Quarter: 2010Q3

REPORT INFORMATION
  Report Type: 
  Country: None (occurrence: None)
  Receive Date: 20100916
  Receipt Date: 20091006
  Transmission Date: 20110219
  Serious: Yes (Other)
  Sender: FDA-Public Use
  Company Number: CO-PFIZER INC-2009280327

PATIENT
  Sex: Female

DRUGS (1)
  1. LYRICA [Suspect]
     Indication: BACK PAIN
     Dosage: 75 MG, 2X/DAY
     Route: 048
     Dates: start: 20091001

REACTIONS (2)
  - DIZZINESS [None]
  - MOTOR DYSFUNCTION [None]
